FAERS Safety Report 12385217 (Version 1)
Quarter: 2016Q2

REPORT INFORMATION
  Report Type: Spontaneous
  Country: US (occurrence: US)
  Receive Date: 20160519
  Receipt Date: 20160519
  Transmission Date: 20160815
  Serious: Yes (Hospitalization)
  Sender: FDA-Public Use
  Company Number: PHHY2016US069164

PATIENT
  Age: 16 Year
  Sex: Female

DRUGS (1)
  1. BUPROPION. [Suspect]
     Active Substance: BUPROPION
     Indication: DEPRESSION
     Dosage: 150 MG, 60 TABLETS OF 150 MG
     Route: 065

REACTIONS (12)
  - Seizure [Recovered/Resolved]
  - Status epilepticus [Unknown]
  - Rhabdomyolysis [Unknown]
  - Tachycardia [Unknown]
  - Cardiomyopathy [Unknown]
  - Cardiogenic shock [Unknown]
  - Cardiac arrest [Unknown]
  - Electrocardiogram QRS complex prolonged [Unknown]
  - Compartment syndrome [Unknown]
  - Pulseless electrical activity [Unknown]
  - Overdose [Unknown]
  - Toxicity to various agents [Unknown]
